FAERS Safety Report 15893184 (Version 1)
Quarter: 2019Q1

REPORT INFORMATION
  Report Type: Report from Study
  Country: US (occurrence: US)
  Receive Date: 20190130
  Receipt Date: 20190130
  Transmission Date: 20190417
  Serious: No
  Sender: FDA-Public Use
  Company Number: US-EXELIXIS-CABO-18016482

PATIENT
  Age: 63 Year
  Sex: Male

DRUGS (1)
  1. CABOMETYX [Suspect]
     Active Substance: CABOZANTINIB S-MALATE
     Indication: RENAL CELL CARCINOMA
     Dosage: 60 MG, QD
     Route: 048
     Dates: start: 20181005, end: 2018

REACTIONS (16)
  - Gastrooesophageal reflux disease [Unknown]
  - Dizziness [Unknown]
  - Diarrhoea [Unknown]
  - Vomiting [Unknown]
  - Palmar-plantar erythrodysaesthesia syndrome [Unknown]
  - Back pain [Unknown]
  - Nausea [Unknown]
  - Flatulence [Unknown]
  - Nasopharyngitis [Unknown]
  - Arthralgia [Unknown]
  - Fatigue [Unknown]
  - Oropharyngeal pain [Unknown]
  - Balance disorder [Unknown]
  - Oral pain [Unknown]
  - Feeling abnormal [Unknown]
  - Dysphonia [Unknown]

NARRATIVE: CASE EVENT DATE: 2018
